FAERS Safety Report 10170446 (Version 1)
Quarter: 2014Q2

REPORT INFORMATION
  Report Type: Spontaneous
  Country: IT (occurrence: IT)
  Receive Date: 20140513
  Receipt Date: 20140513
  Transmission Date: 20141212
  Serious: Yes (Hospitalization)
  Sender: FDA-Public Use
  Company Number: IT-ACTAVIS-2013-25169

PATIENT
  Age: 52 Year
  Sex: Male

DRUGS (5)
  1. VOLTAREN [Suspect]
     Indication: SUICIDE ATTEMPT
     Dosage: 750 MG, DAILY
     Route: 048
     Dates: start: 20130412, end: 20130412
  2. NUROFEN [Suspect]
     Indication: SUICIDE ATTEMPT
     Dosage: 9 G, DAILY
     Route: 048
     Dates: start: 20130412, end: 20130412
  3. GABAPENTIN (UNKNOWN) [Suspect]
     Indication: SUICIDE ATTEMPT
     Dosage: 30 G, DAILY
     Route: 048
     Dates: start: 20130412, end: 20130412
  4. RAMIPRIL (UNKNOWN) [Suspect]
     Indication: SUICIDE ATTEMPT
     Dosage: 2 G, DAILY
     Route: 048
     Dates: start: 20130412, end: 20130412
  5. IBUPROFEN (UNKNOWN) [Suspect]
     Indication: SUICIDE ATTEMPT
     Dosage: 1.8 G, DAILY
     Route: 048
     Dates: start: 20130412, end: 20130412

REACTIONS (2)
  - Intentional self-injury [Unknown]
  - Sopor [Unknown]
